FAERS Safety Report 12814200 (Version 1)
Quarter: 2016Q4

REPORT INFORMATION
  Report Type: Spontaneous
  Country: US (occurrence: US)
  Receive Date: 20161005
  Receipt Date: 20161005
  Transmission Date: 20170207
  Serious: No
  Sender: FDA-Public Use
  Company Number: US-AMGEN-USASP2016049162

PATIENT
  Age: 70 Year
  Sex: Female

DRUGS (1)
  1. PROLIA [Suspect]
     Active Substance: DENOSUMAB
     Indication: OSTEOPENIA
     Dosage: UNK, Q6MO
     Route: 065
     Dates: start: 20151228

REACTIONS (11)
  - Adverse drug reaction [Unknown]
  - Arthralgia [Not Recovered/Not Resolved]
  - Pain [Unknown]
  - Urinary tract infection [Unknown]
  - Arthritis [Unknown]
  - Bladder disorder [Unknown]
  - Back pain [Unknown]
  - Blood cholesterol increased [Unknown]
  - Vision blurred [Unknown]
  - Off label use [Unknown]
  - Pain in extremity [Unknown]
